FAERS Safety Report 6085611-2 (Version None)
Quarter: 2009Q1

REPORT INFORMATION
  Report Type: 
  Country: None (occurrence: None)
  Receive Date: 20090217
  Receipt Date: 20090217
  Transmission Date: 20090719
  Serious: Yes (Other)
  Sender: FDA-Public Use
  Company Number: None

PATIENT
  Age: 2 Year
  Sex: Male
  Weight: 15.8759 kg

DRUGS (1)
  1. ALBUTEROL [Suspect]
     Indication: ASTHMA
     Dosage: TWO INHALATIONS TWICE A DAY OTHER
     Route: 050
     Dates: start: 20070101, end: 20090216

REACTIONS (4)
  - ABASIA [None]
  - CRYING [None]
  - GAIT DISTURBANCE [None]
  - PAIN [None]
